FAERS Safety Report 11318462 (Version 1)
Quarter: 2015Q3

REPORT INFORMATION
  Report Type: Spontaneous
  Country: IT (occurrence: IT)
  Receive Date: 20150729
  Receipt Date: 20150729
  Transmission Date: 20151125
  Serious: Yes (Hospitalization)
  Sender: FDA-Public Use
  Company Number: PHHY2015IT086873

PATIENT
  Age: 11 Month
  Sex: Female

DRUGS (2)
  1. NETILMICIN [Suspect]
     Active Substance: NETILMICIN
     Indication: PHARYNGITIS
     Route: 065
  2. AMOXICILLIN + CLAVULANATE POTASSIUM [Suspect]
     Active Substance: AMOXICILLIN\CLAVULANATE POTASSIUM
     Indication: TONSILLITIS
     Route: 065

REACTIONS (8)
  - Pyrexia [Recovering/Resolving]
  - Diarrhoea [Recovering/Resolving]
  - Acute haemorrhagic oedema of infancy [Recovering/Resolving]
  - Oedema peripheral [Recovering/Resolving]
  - Purpura [Recovering/Resolving]
  - Face oedema [Recovering/Resolving]
  - Gingival disorder [Recovering/Resolving]
  - Lymphadenopathy [Recovering/Resolving]
